FAERS Safety Report 5034446-8 (Version None)
Quarter: 2006Q2

REPORT INFORMATION
  Report Type: 
  Country: None (occurrence: None)
  Receive Date: 20060518
  Receipt Date: 20050920
  Transmission Date: 20061013
  Serious: Yes (Hospitalization)
  Sender: FDA-Public Use
  Company Number: 2005120898

PATIENT
  Sex: Female

DRUGS (2)
  1. DEPO-PROVERA [Suspect]
     Indication: CONTRACEPTION
     Dosage: SEE IMAGE
     Route: 030
     Dates: start: 20030101, end: 20030101
  2. DEPO-PROVERA [Suspect]
     Indication: CONTRACEPTION
     Dosage: SEE IMAGE
     Route: 030
     Dates: start: 20050802, end: 20050802

REACTIONS (6)
  - HYPERSENSITIVITY [None]
  - NASAL CONGESTION [None]
  - OEDEMA PERIPHERAL [None]
  - RASH [None]
  - SHOCK [None]
  - WHEEZING [None]
